FAERS Safety Report 4506492-1 (Version None)
Quarter: 2004Q4

REPORT INFORMATION
  Report Type: 
  Country: None (occurrence: None)
  Receive Date: 20041122
  Receipt Date: 20041111
  Transmission Date: 20050328
  Serious: Yes (Hospitalization)
  Sender: FDA-Public Use
  Company Number: FR-ABBOTT-04P-056-0280390-00

PATIENT
  Age: 50 Year
  Sex: Male

DRUGS (1)
  1. DEPAKINE CHRONO TABLETS [Suspect]
     Indication: CONVULSION
     Route: 048
     Dates: start: 20040401

REACTIONS (4)
  - ABDOMINAL PAIN [None]
  - INSOMNIA [None]
  - PORTAL VEIN THROMBOSIS [None]
  - PYREXIA [None]
